FAERS Safety Report 8307302-7 (Version None)
Quarter: 2012Q2

REPORT INFORMATION
  Report Type: 
  Country: None (occurrence: None)
  Receive Date: 20120424
  Receipt Date: 20120416
  Transmission Date: 20120825
  Serious: Yes (Hospitalization, Other)
  Sender: FDA-Public Use
  Company Number: MX-SANOFI-AVENTIS-2012SA026596

PATIENT
  Age: 63 Year
  Sex: Female

DRUGS (5)
  1. LANTUS [Suspect]
     Route: 058
     Dates: start: 20100601
  2. ANTIHYPERTENSIVES [Concomitant]
     Route: 048
     Dates: start: 20090101
  3. LANTUS [Suspect]
     Indication: TYPE 2 DIABETES MELLITUS
     Route: 058
     Dates: start: 20090101, end: 20100101
  4. METFORMIN HCL [Concomitant]
     Indication: TYPE 2 DIABETES MELLITUS
     Route: 048
     Dates: start: 20000101
  5. GLYBURIDE [Concomitant]
     Indication: TYPE 2 DIABETES MELLITUS
     Dosage: 1 TABLET IN MORNING, 2 IN AFTERNOON AND 1 TABLET IN NIGHT
     Route: 048
     Dates: start: 20000101

REACTIONS (11)
  - DISORIENTATION [None]
  - NEPHROLITHIASIS [None]
  - HYPOGLYCAEMIA [None]
  - HYPERCALCAEMIA [None]
  - HYPERHIDROSIS [None]
  - HYPERGLYCAEMIA [None]
  - ASTHENIA [None]
  - HYPERKALAEMIA [None]
  - DIZZINESS [None]
  - FATIGUE [None]
  - HYPERTRIGLYCERIDAEMIA [None]
